FAERS Safety Report 8245105-2 (Version None)
Quarter: 2012Q1

REPORT INFORMATION
  Report Type: 
  Country: None (occurrence: None)
  Receive Date: 20120329
  Receipt Date: 20120323
  Transmission Date: 20120608
  Serious: Yes (Other)
  Sender: FDA-Public Use
  Company Number: JP-GLAXOSMITHKLINE-B0785269A

PATIENT
  Sex: Male

DRUGS (4)
  1. RELENZA [Suspect]
     Indication: INFLUENZA
     Dosage: 20MG PER DAY
     Route: 055
     Dates: start: 20120229
  2. MUCODYNE [Concomitant]
     Indication: COUGH
     Route: 048
     Dates: start: 20120229
  3. ACETAMINOPHEN [Concomitant]
     Indication: PYREXIA
     Route: 048
  4. TULOBUTEROL [Concomitant]
     Indication: COUGH
     Route: 062
     Dates: start: 20120229

REACTIONS (2)
  - ABNORMAL BEHAVIOUR [None]
  - AGGRESSION [None]
